FAERS Safety Report 8349425-2 (Version None)
Quarter: 2012Q2

REPORT INFORMATION
  Report Type: 
  Country: None (occurrence: None)
  Receive Date: 20120510
  Receipt Date: 20120430
  Transmission Date: 20120825
  Serious: Yes (Other)
  Sender: FDA-Public Use
  Company Number: FR-JNJFOC-20120503962

PATIENT

DRUGS (15)
  1. CYCLOPHOSPHAMIDE [Suspect]
     Route: 042
  2. CLADRIBINE [Suspect]
     Indication: CHRONIC LYMPHOCYTIC LEUKAEMIA RECURRENT
     Route: 065
  3. VALACYCLOVIR HYDROCHLORIDE [Concomitant]
     Indication: PROPHYLAXIS
     Route: 065
  4. ACYCLOVIR [Concomitant]
     Indication: PROPHYLAXIS
     Route: 065
  5. COTRIM [Concomitant]
     Indication: PROPHYLAXIS
     Route: 065
  6. PREDNISONE TAB [Suspect]
     Indication: CHRONIC LYMPHOCYTIC LEUKAEMIA
     Route: 048
  7. RADIATION THERAPY NOS [Suspect]
     Indication: CHRONIC LYMPHOCYTIC LEUKAEMIA
     Route: 065
  8. DOXORUBICIN HCL [Suspect]
     Indication: CHRONIC LYMPHOCYTIC LEUKAEMIA
     Route: 042
  9. GRANULOCYTE COLONY STIMULATING  FACTOR [Suspect]
     Indication: CHRONIC LYMPHOCYTIC LEUKAEMIA
     Route: 058
  10. CYCLOPHOSPHAMIDE [Suspect]
     Dosage: ON 2 SUCCESSIVE DAYS
     Route: 042
  11. CYCLOPHOSPHAMIDE [Suspect]
     Indication: CHRONIC LYMPHOCYTIC LEUKAEMIA
     Route: 065
  12. FLUDARABINE PHOSPHATE [Suspect]
     Indication: CHRONIC LYMPHOCYTIC LEUKAEMIA
     Route: 065
  13. BLOOD PRODUCTS [Concomitant]
     Indication: PROPHYLAXIS
     Route: 065
  14. VINCRISTINE [Suspect]
     Indication: CHRONIC LYMPHOCYTIC LEUKAEMIA
     Route: 042
  15. RITUXIMAB [Suspect]
     Indication: CHRONIC LYMPHOCYTIC LEUKAEMIA RECURRENT
     Route: 065

REACTIONS (2)
  - LUNG NEOPLASM MALIGNANT [None]
  - MYELODYSPLASTIC SYNDROME [None]
